FAERS Safety Report 4631014-4 (Version None)
Quarter: 2005Q2

REPORT INFORMATION
  Report Type: 
  Country: None (occurrence: None)
  Receive Date: 20050406
  Receipt Date: 20050406
  Transmission Date: 20051028
  Serious: No
  Sender: FDA-Public Use
  Company Number: None

PATIENT
  Age: 35 Year
  Sex: Male

DRUGS (1)
  1. CLEAR ZIT CREAM [Suspect]

REACTIONS (2)
  - SWELLING FACE [None]
  - THERMAL BURN [None]
